FAERS Safety Report 20446443 (Version 1)
Quarter: 2022Q1

REPORT INFORMATION
  Report Type: Spontaneous
  Country: LT (occurrence: LT)
  Receive Date: 20220208
  Receipt Date: 20220208
  Transmission Date: 20220423
  Serious: Yes (Hospitalization)
  Sender: FDA-Public Use
  Company Number: LT-MLMSERVICE-20220125-3301725-1

PATIENT
  Age: 51 Year
  Sex: Male

DRUGS (6)
  1. DEXAMETHASONE [Suspect]
     Active Substance: DEXAMETHASONE
     Indication: COVID-19 pneumonia
     Route: 065
     Dates: start: 202012
  2. AMOXICILLIN\CLAVULANIC ACID [Concomitant]
     Active Substance: AMOXICILLIN\CLAVULANIC ACID
     Indication: COVID-19 pneumonia
     Dates: start: 202012
  3. UNSPECIFIED INGREDIENT [Concomitant]
     Active Substance: UNSPECIFIED INGREDIENT
     Indication: COVID-19 pneumonia
     Dates: start: 202012
  4. UNSPECIFIED INGREDIENT [Concomitant]
     Active Substance: UNSPECIFIED INGREDIENT
     Dosage: INCREASED FROM PROPHYLACTIC TO THERAPEUTIC
     Dates: start: 202012
  5. OXYGEN [Concomitant]
     Active Substance: OXYGEN
     Indication: COVID-19 pneumonia
     Dates: start: 202012
  6. OXYGEN [Concomitant]
     Active Substance: OXYGEN
     Dosage: MAXIMUM OXYGEN FLOW
     Dates: start: 202012

REACTIONS (1)
  - Vascular graft infection [Recovered/Resolved]

NARRATIVE: CASE EVENT DATE: 20201201
